FAERS Safety Report 7379133-6 (Version None)
Quarter: 2011Q1

REPORT INFORMATION
  Report Type: 
  Country: None (occurrence: None)
  Receive Date: 20110328
  Receipt Date: 20100215
  Transmission Date: 20110831
  Serious: Yes (Other)
  Sender: FDA-Public Use
  Company Number: PHHY2010DE08991

PATIENT
  Sex: Female

DRUGS (2)
  1. EXTAVIA [Suspect]
     Indication: RELAPSING-REMITTING MULTIPLE SCLEROSIS
     Dosage: 0.75 ML/2 DAYS
     Route: 058
     Dates: start: 20100129
  2. EXTAVIA [Suspect]
     Dosage: 0.5 UNK, UNK

REACTIONS (9)
  - LOSS OF CONSCIOUSNESS [None]
  - LACK OF SPONTANEOUS SPEECH [None]
  - FEELING ABNORMAL [None]
  - MALAISE [None]
  - MEMORY IMPAIRMENT [None]
  - MOTOR DYSFUNCTION [None]
  - HYPERSENSITIVITY [None]
  - MUSCULAR WEAKNESS [None]
  - DIZZINESS [None]
